FAERS Safety Report 5874528-1 (Version None)
Quarter: 2008Q3

REPORT INFORMATION
  Report Type: 
  Country: None (occurrence: None)
  Receive Date: 20080909
  Receipt Date: 20080901
  Transmission Date: 20090109
  Serious: Yes (Other)
  Sender: FDA-Public Use
  Company Number: PHHY2008GB14940

PATIENT
  Sex: Male

DRUGS (6)
  1. CLOZARIL [Suspect]
     Indication: SCHIZOPHRENIA
     Dosage: UNK
     Route: 048
     Dates: start: 20020807
  2. CLOZARIL [Suspect]
     Dosage: 350MG/DAY
  3. CLOZARIL [Suspect]
     Dosage: 325MG/DAY
     Dates: start: 20080723
  4. LOFEPRAMINE [Concomitant]
     Dosage: 210 MG
     Route: 048
  5. HYOSCINE [Concomitant]
     Dosage: 1200 MCG
     Route: 048
  6. HYOSCINE [Concomitant]
     Dosage: 600MCG/DAY
     Dates: start: 20080723

REACTIONS (6)
  - ANXIETY [None]
  - DRUG LEVEL INCREASED [None]
  - ELECTROCARDIOGRAM QT PROLONGED [None]
  - HEART RATE ABNORMAL [None]
  - LEFT VENTRICULAR HYPERTROPHY [None]
  - TACHYCARDIA [None]
